FAERS Safety Report 8906123 (Version 1)
Quarter: 2012Q4

REPORT INFORMATION
  Report Type: Spontaneous
  Country: FR (occurrence: None)
  Receive Date: 20121102
  Receipt Date: 20121102
  Transmission Date: 20130627
  Serious: Yes (Hospitalization)
  Sender: FDA-Public Use
  Company Number: 2012033795

PATIENT
  Age: 20 Year
  Sex: Male

DRUGS (7)
  1. HIZENTRA [Suspect]
     Indication: IGA DEFICIENCY
     Dosage: 200mg/ml subcutaneous
     Route: 058
     Dates: start: 20120824
  2. CORTANCYL [Concomitant]
  3. IMUREL (AZATHIOPRINE) [Concomitant]
  4. CALTRATE /01721501/ (CALTRATE /01721501/) [Concomitant]
  5. FOLIC ACID (FOLIC ACID) [Concomitant]
  6. DEDROGYL (CALCIFEDIOL) [Concomitant]
  7. GENTAMINA (GENTAMICIN) [Concomitant]

REACTIONS (7)
  - Urticaria [None]
  - Pruritus [None]
  - Injection site swelling [None]
  - Injection site erythema [None]
  - Oedema peripheral [None]
  - Pain in extremity [None]
  - Purpura [None]
